FAERS Safety Report 6758143-3 (Version None)
Quarter: 2010Q2

REPORT INFORMATION
  Report Type: 
  Country: None (occurrence: None)
  Receive Date: 20100607
  Receipt Date: 20100507
  Transmission Date: 20101027
  Serious: Yes (Other)
  Sender: FDA-Public Use
  Company Number: US-JNJCH-2010013365

PATIENT

DRUGS (2)
  1. CHILDREN'S BENADRYL ALLERGY [Suspect]
     Indication: DRUG USE FOR UNKNOWN INDICATION
     Dosage: TEXT:UNSPECIFIED
     Route: 048
  2. CHILDREN'S MOTRIN [Suspect]
     Indication: DRUG USE FOR UNKNOWN INDICATION
     Dosage: TEXT:UNSPECIFIED
     Route: 065

REACTIONS (5)
  - BACTERIAL INFECTION [None]
  - FATIGUE [None]
  - PRODUCT QUALITY ISSUE [None]
  - PYREXIA [None]
  - RASH [None]
